FAERS Safety Report 10020432 (Version 1)
Quarter: 2014Q1

REPORT INFORMATION
  Report Type: Spontaneous
  Country: US (occurrence: US)
  Receive Date: 20140319
  Receipt Date: 20140319
  Transmission Date: 20141002
  Serious: No
  Sender: FDA-Public Use
  Company Number: US-BIOGENIDEC-2014BI022543

PATIENT
  Age: 30 Year
  Sex: Female

DRUGS (2)
  1. TECFIDERA [Suspect]
     Indication: MULTIPLE SCLEROSIS
     Route: 048
     Dates: start: 20130522
  2. CARAFATE [Concomitant]
     Indication: PREMEDICATION

REACTIONS (4)
  - Nuclear magnetic resonance imaging abnormal [Unknown]
  - Diarrhoea [Unknown]
  - Flushing [Unknown]
  - Multiple sclerosis relapse [Unknown]
